FAERS Safety Report 23371950 (Version 1)
Quarter: 2024Q1

REPORT INFORMATION
  Report Type: Spontaneous
  Country: US (occurrence: None)
  Receive Date: 20240105
  Receipt Date: 20240105
  Transmission Date: 20240410
  Serious: No
  Sender: FDA-Public Use
  Company Number: None

PATIENT

DRUGS (3)
  1. STERILE WATER FOR INJECTION [Suspect]
     Active Substance: WATER
     Dosage: OTHER ROUTE : IRRIGATION ONLY;?
     Route: 050
  2. DAKINS FULL [Suspect]
     Active Substance: SODIUM HYPOCHLORITE
  3. SODIUM HYPOCHLORITE [Suspect]
     Active Substance: SODIUM HYPOCHLORITE
     Route: 061

REACTIONS (3)
  - Product label confusion [None]
  - Packaging design issue [None]
  - Circumstance or information capable of leading to medication error [None]
